FAERS Safety Report 16462454 (Version 3)
Quarter: 2019Q3

REPORT INFORMATION
  Report Type: Spontaneous
  Country: JP (occurrence: JP)
  Receive Date: 20190621
  Receipt Date: 20190701
  Transmission Date: 20191004
  Serious: Yes (Other)
  Sender: FDA-Public Use
  Company Number: JP-PFIZER INC-2019263645

PATIENT
  Age: 8 Decade
  Sex: Female

DRUGS (1)
  1. LIPITOR [Suspect]
     Active Substance: ATORVASTATIN CALCIUM
     Dosage: UNK
     Route: 048
     Dates: start: 201612, end: 20180703

REACTIONS (3)
  - Rhabdomyolysis [Recovering/Resolving]
  - Muscle atrophy [Recovering/Resolving]
  - Gait disturbance [Recovering/Resolving]
